FAERS Safety Report 8566743-3 (Version None)
Quarter: 2012Q3

REPORT INFORMATION
  Report Type: 
  Country: None (occurrence: None)
  Receive Date: 20120803
  Receipt Date: 20120103
  Transmission Date: 20120928
  Serious: No
  Sender: FDA-Public Use
  Company Number: US-ABBOTT-12P-163-0889999-00

PATIENT
  Sex: Male
  Weight: 92.162 kg

DRUGS (7)
  1. NIASPAN [Suspect]
     Indication: CORONARY ARTERY OCCLUSION
     Dosage: 2 TABLETS AT NIGHT, 1000MG
  2. DIGOXIN [Concomitant]
     Indication: PRODUCT USED FOR UNKNOWN INDICATION
  3. SINGULAIR [Concomitant]
     Indication: PRODUCT USED FOR UNKNOWN INDICATION
  4. FLUTICASONE PROPIONATE [Concomitant]
     Indication: PRODUCT USED FOR UNKNOWN INDICATION
  5. JALYN [Concomitant]
     Indication: PRODUCT USED FOR UNKNOWN INDICATION
  6. ADVICOR [Concomitant]
     Indication: PRODUCT USED FOR UNKNOWN INDICATION
  7. ALTACE [Concomitant]
     Indication: PRODUCT USED FOR UNKNOWN INDICATION

REACTIONS (5)
  - THYROID DISORDER [None]
  - BLEEDING VARICOSE VEIN [None]
  - FATIGUE [None]
  - MUSCULOSKELETAL DISCOMFORT [None]
  - MYALGIA [None]
